FAERS Safety Report 6933331-1 (Version None)
Quarter: 2010Q3

REPORT INFORMATION
  Report Type: 
  Country: None (occurrence: None)
  Receive Date: 20100820
  Receipt Date: 20100806
  Transmission Date: 20110219
  Serious: Yes (Other)
  Sender: FDA-Public Use
  Company Number: US-BAYER-201030210NA

PATIENT
  Age: 45 Year
  Sex: Female
  Weight: 129 kg

DRUGS (6)
  1. YAZ [Suspect]
     Indication: PRODUCT USED FOR UNKNOWN INDICATION
     Route: 048
     Dates: start: 20071101, end: 20091201
  2. YASMIN [Suspect]
     Indication: ORAL CONTRACEPTION
     Route: 048
     Dates: start: 20071201
  3. DROSPIRENONE AND EHTINYL ESTRADIOL [Suspect]
     Indication: ORAL CONTRACEPTION
     Dates: end: 20091201
  4. FISH OIL [Concomitant]
  5. MULTI-VITAMIN [Concomitant]
  6. GLUCOSAMIN [Concomitant]

REACTIONS (5)
  - CHOLELITHIASIS [None]
  - DIARRHOEA [None]
  - GALLBLADDER DISORDER [None]
  - GASTRIC DISORDER [None]
  - PAIN [None]
